FAERS Safety Report 4294452-8 (Version None)
Quarter: 2004Q1

REPORT INFORMATION
  Report Type: 
  Country: None (occurrence: None)
  Receive Date: 20040211
  Receipt Date: 20040206
  Transmission Date: 20041129
  Serious: Yes (Death, Other)
  Sender: FDA-Public Use
  Company Number: 200410005BNE

PATIENT
  Age: 86 Year
  Sex: Female

DRUGS (5)
  1. ASPIRIN [Suspect]
     Dosage: 75 MG, TOTAL DAILY,
  2. RISPERDAL [Suspect]
     Indication: PARANOIA
     Dosage: 0.5 MG, BID, ORAL
     Route: 048
     Dates: start: 20020910, end: 20021201
  3. IRON [Suspect]
  4. FOLIC ACID [Concomitant]
  5. AUGMENTIN [Concomitant]

REACTIONS (2)
  - CEREBROVASCULAR ACCIDENT [None]
  - PNEUMONIA ASPIRATION [None]
